FAERS Safety Report 6641536-2 (Version None)
Quarter: 2010Q1

REPORT INFORMATION
  Report Type: 
  Country: None (occurrence: None)
  Receive Date: 20100317
  Receipt Date: 20100317
  Transmission Date: 20100710
  Serious: Yes (Death)
  Sender: FDA-Public Use
  Company Number: None

PATIENT
  Age: 21 Year
  Sex: Female
  Weight: 77 kg

DRUGS (10)
  1. PROPOFOL [Suspect]
     Indication: SEDATION
     Dosage: 80 MCG/KG/MIN CONTINUOUS INFUSION IV
     Route: 042
     Dates: start: 20100108, end: 20100112
  2. AMPICILLIN AND SULBACTAM [Concomitant]
  3. HEPARIN [Concomitant]
  4. LACRILUBE [Concomitant]
  5. PHENYTOIN [Concomitant]
  6. FENTANYL [Concomitant]
  7. PANCURONIUM BROMIDE [Concomitant]
  8. NOREPIPEPHRINE [Concomitant]
  9. HYDROMORPHONE HCL [Concomitant]
  10. LORAZEPAM [Concomitant]

REACTIONS (1)
  - LABORATORY TEST INTERFERENCE [None]
